FAERS Safety Report 23756108 (Version 1)
Quarter: 2024Q2

REPORT INFORMATION
  Report Type: Spontaneous
  Country: US (occurrence: None)
  Receive Date: 20240417
  Receipt Date: 20240417
  Transmission Date: 20240716
  Serious: Yes (Other)
  Sender: FDA-Public Use
  Company Number: None

PATIENT
  Age: 49 Year
  Sex: Female

DRUGS (1)
  1. LUPRON DEPOT [Suspect]
     Active Substance: LEUPROLIDE ACETATE
     Dosage: 11.25MG  EVERY 3 MONTHS ?
     Dates: start: 20231031

REACTIONS (6)
  - Hypoaesthesia [None]
  - Paraesthesia [None]
  - Movement disorder [None]
  - Peripheral swelling [None]
  - Peripheral swelling [None]
  - Dizziness [None]

NARRATIVE: CASE EVENT DATE: 20240415
